FAERS Safety Report 18388954 (Version 3)
Quarter: 2020Q4

REPORT INFORMATION
  Report Type: Spontaneous
  Country: JP (occurrence: JP)
  Receive Date: 20201015
  Receipt Date: 20201020
  Transmission Date: 20210114
  Serious: Yes (Other)
  Sender: FDA-Public Use
  Company Number: JP-BAYER-2020-219569

PATIENT

DRUGS (2)
  1. NEXAVAR [Suspect]
     Active Substance: SORAFENIB
     Dosage: UNK
     Dates: start: 201907, end: 201911
  2. STIVARGA [Suspect]
     Active Substance: REGORAFENIB
     Dosage: ADMINISTRATION FOR 5 DAYS AND WITHDRAWAL FOR 2 DAYS
     Route: 048
     Dates: start: 201911, end: 202008

REACTIONS (6)
  - Heat illness [None]
  - Fatigue [None]
  - Off label use [None]
  - Decreased appetite [None]
  - Disease progression [None]
  - Palmar-plantar erythrodysaesthesia syndrome [None]

NARRATIVE: CASE EVENT DATE: 201907
